FAERS Safety Report 21762349 (Version 1)
Quarter: 2022Q4

REPORT INFORMATION
  Report Type: Report from Study
  Country: US (occurrence: US)
  Receive Date: 20221221
  Receipt Date: 20221221
  Transmission Date: 20230113
  Serious: No
  Sender: FDA-Public Use
  Company Number: US-ABBVIE-22K-163-4403808-00

PATIENT
  Age: 25 Year
  Sex: Male

DRUGS (3)
  1. HUMIRA [Suspect]
     Active Substance: ADALIMUMAB
     Indication: Crohn^s disease
     Route: 058
     Dates: start: 20211104
  2. HUMIRA [Suspect]
     Active Substance: ADALIMUMAB
     Route: 058
  3. HUMIRA [Suspect]
     Active Substance: ADALIMUMAB

REACTIONS (23)
  - Injection site swelling [Not Recovered/Not Resolved]
  - Decreased appetite [Recovering/Resolving]
  - Asthenia [Recovering/Resolving]
  - Tonsillolith [Recovering/Resolving]
  - Gastrointestinal sounds abnormal [Unknown]
  - Loss of personal independence in daily activities [Unknown]
  - Uveitis [Unknown]
  - Malaise [Unknown]
  - Eye disorder [Unknown]
  - Fatigue [Recovering/Resolving]
  - Insomnia [Recovered/Resolved]
  - Diarrhoea [Unknown]
  - Insomnia [Recovering/Resolving]
  - Nausea [Unknown]
  - Productive cough [Unknown]
  - Vomiting [Recovered/Resolved]
  - Inflammation [Unknown]
  - Abdominal distension [Unknown]
  - Tonsillitis [Unknown]
  - Abdominal pain [Unknown]
  - Arthralgia [Unknown]
  - Injection site erythema [Recovered/Resolved]
  - Injection site pain [Recovered/Resolved]

NARRATIVE: CASE EVENT DATE: 20220501
